FAERS Safety Report 21341076 (Version 4)
Quarter: 2023Q4

REPORT INFORMATION
  Report Type: Report from Study
  Country: US (occurrence: None)
  Receive Date: 20220916
  Receipt Date: 20231010
  Transmission Date: 20240110
  Serious: Yes (Other)
  Sender: FDA-Public Use
  Company Number: US-ROCHE-3177139

PATIENT
  Sex: Female

DRUGS (1)
  1. ATEZOLIZUMAB [Suspect]
     Active Substance: ATEZOLIZUMAB
     Indication: Adenocarcinoma of colon
     Dosage: ON DAY 1 OF EACH CYCLE, OVER 46HOURS ON DAYS1 AND 3?CURRENT TREATMENT: 27/APR/2023, CYCLES1-12CYCLE=
     Route: 042

REACTIONS (2)
  - Blood cholesterol increased [Unknown]
  - Hypertriglyceridaemia [Unknown]

NARRATIVE: CASE EVENT DATE: 20220707
